FAERS Safety Report 12611877 (Version 1)
Quarter: 2016Q3

REPORT INFORMATION
  Report Type: Spontaneous
  Country: US (occurrence: US)
  Receive Date: 20160801
  Receipt Date: 20160801
  Transmission Date: 20161109
  Serious: No
  Sender: FDA-Public Use
  Company Number: US-PFIZER INC-3050443

PATIENT
  Age: 45 Year
  Sex: Male

DRUGS (2)
  1. ENBREL [Suspect]
     Active Substance: ETANERCEPT
     Indication: RHEUMATOID ARTHRITIS
     Dosage: 50 MG, FREQ: 1 WEEK; INTERVAL: 1
     Route: 065
     Dates: start: 20120809
  2. METHOTREXATE SODIUM. [Suspect]
     Active Substance: METHOTREXATE SODIUM
     Indication: PRODUCT USED FOR UNKNOWN INDICATION
     Dosage: UNK
     Route: 065

REACTIONS (7)
  - Hepatic enzyme increased [Recovered/Resolved]
  - Drug dose omission [Not Recovered/Not Resolved]
  - Nasopharyngitis [Recovered/Resolved]
  - Fear [Recovered/Resolved]
  - Pyrexia [Recovered/Resolved]
  - Feeling abnormal [Recovered/Resolved]
  - Incorrect product storage [Not Recovered/Not Resolved]

NARRATIVE: CASE EVENT DATE: 20150706
